FAERS Safety Report 17688868 (Version 1)
Quarter: 2020Q2

REPORT INFORMATION
  Report Type: Spontaneous
  Country: CA (occurrence: CA)
  Receive Date: 20200421
  Receipt Date: 20200421
  Transmission Date: 20200714
  Serious: Yes (Other)
  Sender: FDA-Public Use
  Company Number: CA-SA-2020SA100832

PATIENT

DRUGS (7)
  1. METHOTREXATE. [Suspect]
     Active Substance: METHOTREXATE
     Indication: BLAU SYNDROME
  2. MYOCHRYSINE [Suspect]
     Active Substance: GOLD SODIUM THIOMALATE
     Indication: BLAU SYNDROME
  3. LEFLUNOMIDE. [Suspect]
     Active Substance: LEFLUNOMIDE
     Indication: BLAU SYNDROME
     Dosage: UNK
  4. CHLOROQUINE SULFATE [Suspect]
     Active Substance: CHLOROQUINE SULFATE
     Indication: BLAU SYNDROME
  5. PLAQUENIL [Suspect]
     Active Substance: HYDROXYCHLOROQUINE SULFATE
     Indication: BLAU SYNDROME
  6. HUMIRA [Suspect]
     Active Substance: ADALIMUMAB
     Indication: BLAU SYNDROME
  7. REMICADE [Suspect]
     Active Substance: INFLIXIMAB
     Indication: BLAU SYNDROME

REACTIONS (6)
  - Treatment failure [Unknown]
  - Uveitis [Unknown]
  - Skin lesion [Unknown]
  - Deformity [Unknown]
  - Polyarthritis [Unknown]
  - Movement disorder [Unknown]
